FAERS Safety Report 10248142 (Version 2)
Quarter: 2014Q2

REPORT INFORMATION
  Report Type: Spontaneous
  Country: SK (occurrence: SK)
  Receive Date: 20140619
  Receipt Date: 20140626
  Transmission Date: 20141212
  Serious: Yes (Death)
  Sender: FDA-Public Use
  Company Number: SK-ROCHE-1421350

PATIENT
  Age: 61 Year
  Sex: Male
  Weight: 74 kg

DRUGS (7)
  1. ROACTEMRA [Suspect]
     Indication: RHEUMATOID ARTHRITIS
     Route: 042
     Dates: start: 20140521
  2. HELICID [Concomitant]
  3. CORVATON RETARD [Concomitant]
     Route: 048
  4. TRIMETAZIDINA [Concomitant]
     Route: 048
  5. TORVACARD [Concomitant]
     Route: 048
  6. CLOPIDOGREL [Concomitant]
     Route: 048
  7. AULIN [Concomitant]

REACTIONS (1)
  - Cardiopulmonary failure [Fatal]
